FAERS Safety Report 6480262-X (Version None)
Quarter: 2009Q4

REPORT INFORMATION
  Report Type: 
  Country: None (occurrence: None)
  Receive Date: 20091202
  Receipt Date: 20091116
  Transmission Date: 20100525
  Serious: Yes (Other)
  Sender: FDA-Public Use
  Company Number: AUR-APU-2009-01352

PATIENT
  Age: 26 Year
  Sex: Male
  Weight: 68.0396 kg

DRUGS (4)
  1. CARISOPRODOL [Suspect]
     Indication: BACK PAIN
     Dosage: 1 TABLET - TID - ORAL
     Route: 048
     Dates: start: 20091015, end: 20091115
  2. TORADOL [Concomitant]
  3. VICODIN [Concomitant]
  4. VYVANSE [Concomitant]

REACTIONS (1)
  - HYPOAESTHESIA [None]
